FAERS Safety Report 9789776 (Version 2)
Quarter: 2014Q1

REPORT INFORMATION
  Report Type: Spontaneous
  Country: US (occurrence: US)
  Receive Date: 20131231
  Receipt Date: 20140121
  Transmission Date: 20141002
  Serious: No
  Sender: FDA-Public Use
  Company Number: US-PFIZER INC-2013368888

PATIENT
  Age: 29 Year
  Sex: Female

DRUGS (7)
  1. METRONIDAZOLE [Suspect]
     Dosage: UNK
  2. RELPAX [Suspect]
     Indication: HEADACHE
     Dosage: 40 MG, AS NEEDED
     Route: 048
  3. PHENTERMINE [Suspect]
     Dosage: UNK
  4. PREDNISONE [Suspect]
  5. AMITRIPTYLINE [Suspect]
     Dosage: UNK
  6. AUGMENTIN [Suspect]
     Dosage: UNK
  7. VICODIN [Suspect]
     Dosage: UNK

REACTIONS (1)
  - Drug hypersensitivity [Unknown]
